FAERS Safety Report 14669632 (Version 1)
Quarter: 2018Q1

REPORT INFORMATION
  Report Type: Spontaneous
  Country: US (occurrence: US)
  Receive Date: 20180322
  Receipt Date: 20180322
  Transmission Date: 20180509
  Serious: Yes (Hospitalization, Other)
  Sender: FDA-Public Use
  Company Number: US-GLAXOSMITHKLINE-US2018044064

PATIENT
  Age: 74 Year
  Sex: Female

DRUGS (9)
  1. INFLUENZA VACCINE 2017-2018 SEASON [Concomitant]
     Dates: start: 201710, end: 201710
  2. ZYRTEC [Concomitant]
     Active Substance: CETIRIZINE HYDROCHLORIDE
  3. PROVENTIL [Concomitant]
     Active Substance: ALBUTEROL
  4. XANAX [Suspect]
     Active Substance: ALPRAZOLAM
     Indication: PRODUCT USED FOR UNKNOWN INDICATION
     Dosage: UNK UNK, U
  5. VENTOLIN HFA [Suspect]
     Active Substance: ALBUTEROL SULFATE
     Indication: WHEEZING
     Dosage: 2 PUFF(S), PRN
     Route: 055
     Dates: start: 2015, end: 201802
  6. PNEUMOCOCCAL VACCINE POLYVALENT NOS [Concomitant]
     Active Substance: PNEUMOCOCCAL VACCINE POLYVALENT
     Dates: start: 2017, end: 2017
  7. FLUTICASONE NASAL SPRAY [Concomitant]
     Active Substance: FLUTICASONE
  8. SYMBICORT [Concomitant]
     Active Substance: BUDESONIDE\FORMOTEROL FUMARATE DIHYDRATE
  9. TYLENOL [Concomitant]
     Active Substance: ACETAMINOPHEN

REACTIONS (20)
  - Pneumonia [Recovered/Resolved]
  - Influenza [Recovering/Resolving]
  - Peripheral venous disease [Not Recovered/Not Resolved]
  - Cough [Recovering/Resolving]
  - Palpitations [Not Recovered/Not Resolved]
  - Cardiac ablation [Unknown]
  - Oropharyngeal pain [Unknown]
  - Wheezing [Recovering/Resolving]
  - Laceration [Recovered/Resolved]
  - Cardiovascular disorder [Unknown]
  - Skin operation [Unknown]
  - Oxygen therapy [Recovered/Resolved]
  - Supraventricular extrasystoles [Not Recovered/Not Resolved]
  - Euphoric mood [Unknown]
  - Restlessness [Unknown]
  - Haematoma [Recovered/Resolved]
  - Somnolence [Unknown]
  - Compression garment application [Unknown]
  - Mitral valve incompetence [Not Recovered/Not Resolved]
  - Cardiac monitoring [Recovered/Resolved]

NARRATIVE: CASE EVENT DATE: 2015
